FAERS Safety Report 9788770 (Version 1)
Quarter: 2013Q4

REPORT INFORMATION
  Report Type: Report from Study
  Country: US (occurrence: US)
  Receive Date: 20131230
  Receipt Date: 20131230
  Transmission Date: 20140711
  Serious: Yes (Other)
  Sender: FDA-Public Use
  Company Number: PHEH2013US025626

PATIENT
  Sex: Female

DRUGS (4)
  1. TASIGNA [Suspect]
     Indication: CHRONIC MYELOID LEUKAEMIA
     Dosage: 400 MG, BID
     Route: 048
     Dates: start: 20130417
  2. PROVIGIL [Suspect]
  3. ALPRAZOLAM [Concomitant]
  4. DIAMOX [Concomitant]

REACTIONS (1)
  - Drug interaction [Not Recovered/Not Resolved]
